FAERS Safety Report 4674925-6 (Version None)
Quarter: 2005Q2

REPORT INFORMATION
  Report Type: 
  Country: None (occurrence: None)
  Receive Date: 20050526
  Receipt Date: 20050512
  Transmission Date: 20051028
  Serious: Yes (Death)
  Sender: FDA-Public Use
  Company Number: 2005S1000090

PATIENT
  Age: 92 Year
  Sex: Female

DRUGS (2)
  1. CUBICIN [Suspect]
     Indication: STAPHYLOCOCCAL BACTERAEMIA
     Dosage: 6 MG/KG; Q24H; IV
     Route: 042
  2. VANCOMYCIN [Concomitant]

REACTIONS (2)
  - CONDITION AGGRAVATED [None]
  - STAPHYLOCOCCAL BACTERAEMIA [None]
